FAERS Safety Report 4366272-7 (Version None)
Quarter: 2004Q2

REPORT INFORMATION
  Report Type: 
  Country: None (occurrence: None)
  Receive Date: 20040524
  Receipt Date: 20040514
  Transmission Date: 20050107
  Serious: Yes (Other)
  Sender: FDA-Public Use
  Company Number: 2004213488AT

PATIENT
  Age: 28 Year
  Sex: Female
  Weight: 78 kg

DRUGS (1)
  1. MEDROXYPROGESTERONE ACETATE [Suspect]
     Indication: CONTRACEPTION
     Dosage: 150MG/EVERY 3 MONTHS, 2 INJ., INTRAMUSCULAR
     Route: 030
     Dates: start: 20030101, end: 20030101

REACTIONS (3)
  - AMENORRHOEA [None]
  - AUTOIMMUNE THYROIDITIS [None]
  - WEIGHT INCREASED [None]
